FAERS Safety Report 7418446-6 (Version None)
Quarter: 2011Q2

REPORT INFORMATION
  Report Type: 
  Country: None (occurrence: None)
  Receive Date: 20110407
  Receipt Date: 20110331
  Transmission Date: 20111010
  Serious: Yes (Hospitalization, Other)
  Sender: FDA-Public Use
  Company Number: 2008-180467-NL

PATIENT
  Age: 44 Year
  Sex: Female
  Weight: 72.6 kg

DRUGS (1)
  1. NUVARING [Suspect]
     Indication: MENSTRUATION IRREGULAR
     Dosage: 1 DF
     Dates: start: 20040426, end: 20040712

REACTIONS (26)
  - SUPERIOR SAGITTAL SINUS THROMBOSIS [None]
  - UTERINE HAEMORRHAGE [None]
  - INTERNATIONAL NORMALISED RATIO INCREASED [None]
  - SUBDURAL HAEMATOMA [None]
  - VAGINAL HAEMORRHAGE [None]
  - ANAEMIA [None]
  - GRAND MAL CONVULSION [None]
  - MITRAL VALVE INCOMPETENCE [None]
  - HYPOTHYROIDISM [None]
  - CONSTIPATION [None]
  - GASTROOESOPHAGEAL REFLUX DISEASE [None]
  - HEPATIC STEATOSIS [None]
  - UTERINE LEIOMYOMA [None]
  - CAVERNOUS SINUS THROMBOSIS [None]
  - HEADACHE [None]
  - NECK MASS [None]
  - ABDOMINAL PAIN [None]
  - COGNITIVE DISORDER [None]
  - PNEUMONIA [None]
  - VISION BLURRED [None]
  - HAEMATOMA [None]
  - ANEURYSM [None]
  - BLOOD PROLACTIN INCREASED [None]
  - URINARY TRACT INFECTION [None]
  - BACK PAIN [None]
  - PROTHROMBIN TIME PROLONGED [None]
